FAERS Safety Report 4402713-4 (Version None)
Quarter: 2004Q3

REPORT INFORMATION
  Report Type: 
  Country: None (occurrence: None)
  Receive Date: 20040721
  Receipt Date: 20040621
  Transmission Date: 20050211
  Serious: No
  Sender: FDA-Public Use
  Company Number: US-BRISTOL-MYERS SQUIBB COMPANY-12620647

PATIENT
  Age: 52 Year
  Sex: Female
  Weight: 80 kg

DRUGS (1)
  1. DOVONEX [Suspect]
     Indication: PSORIASIS
     Route: 061
     Dates: start: 20040610, end: 20040601

REACTIONS (1)
  - SEBORRHOEIC DERMATITIS [None]
